FAERS Safety Report 12532335 (Version 1)
Quarter: 2016Q3

REPORT INFORMATION
  Report Type: Spontaneous
  Country: US (occurrence: US)
  Receive Date: 20160706
  Receipt Date: 20160706
  Transmission Date: 20161109
  Serious: Yes (Other)
  Sender: FDA-Public Use
  Company Number: US-TAKEDA-2016TUS011271

PATIENT
  Age: 20 Year
  Sex: Female
  Weight: 52.15 kg

DRUGS (3)
  1. ENTYVIO [Suspect]
     Active Substance: VEDOLIZUMAB
     Indication: CROHN^S DISEASE
     Dosage: UNK
     Route: 042
     Dates: start: 2015, end: 201512
  2. ENTYVIO [Suspect]
     Active Substance: VEDOLIZUMAB
     Indication: ARTHRITIS
     Dosage: UNK
     Route: 042
     Dates: start: 201603, end: 201603
  3. ENTYVIO [Suspect]
     Active Substance: VEDOLIZUMAB
     Dosage: UNK
     Route: 042
     Dates: start: 201504

REACTIONS (6)
  - Intestinal obstruction [Recovered/Resolved]
  - Inappropriate schedule of drug administration [Unknown]
  - Off label use [Unknown]
  - Precancerous cells present [Recovered/Resolved]
  - Pharyngitis streptococcal [Recovered/Resolved]
  - Polyarthritis [Not Recovered/Not Resolved]

NARRATIVE: CASE EVENT DATE: 201508
